FAERS Safety Report 6664728-5 (Version None)
Quarter: 2010Q1

REPORT INFORMATION
  Report Type: 
  Country: None (occurrence: None)
  Receive Date: 20100330
  Receipt Date: 20100316
  Transmission Date: 20100710
  Serious: Yes (Hospitalization)
  Sender: FDA-Public Use
  Company Number: 230470J10BRA

PATIENT
  Age: 44 Year
  Sex: Male

DRUGS (4)
  1. REBIF [Suspect]
     Indication: RELAPSING-REMITTING MULTIPLE SCLEROSIS
     Dosage: 22 MCG, 3 IN 1 WEEKS
     Dates: start: 20100115, end: 20100222
  2. RIVOTRIL (CLONAZEPAM) [Concomitant]
  3. IBUPROFEN [Concomitant]
  4. LEXAPRO [Concomitant]

REACTIONS (4)
  - ASTHENIA [None]
  - OPTIC NEURITIS [None]
  - UNEVALUABLE EVENT [None]
  - URINARY INCONTINENCE [None]
